FAERS Safety Report 16888861 (Version 2)
Quarter: 2019Q4

REPORT INFORMATION
  Report Type: Spontaneous
  Country: US (occurrence: US)
  Receive Date: 20191007
  Receipt Date: 20191010
  Transmission Date: 20200122
  Serious: No
  Sender: FDA-Public Use
  Company Number: US-009507513-1909USA006925

PATIENT
  Age: 51 Year
  Sex: Female

DRUGS (3)
  1. SINGULAIR [Concomitant]
     Active Substance: MONTELUKAST SODIUM
  2. DULERA [Suspect]
     Active Substance: FORMOTEROL FUMARATE DIHYDRATE\MOMETASONE FUROATE
     Indication: SEASONAL ALLERGY
     Dosage: 4 PUFFS EVERY DAY, STRENGTH:100 MCG/5 MCG
     Route: 055
     Dates: start: 2014
  3. DULERA [Suspect]
     Active Substance: FORMOTEROL FUMARATE DIHYDRATE\MOMETASONE FUROATE
     Indication: ASTHMA
     Dosage: 4 PUFFS EVERY DAY, STRENGTH:100 MCG/5 MCG
     Route: 055
     Dates: start: 20190828

REACTIONS (3)
  - Product quality issue [Unknown]
  - Nasal congestion [Not Recovered/Not Resolved]
  - Poor quality device used [Unknown]

NARRATIVE: CASE EVENT DATE: 201909
